FAERS Safety Report 4381439-X (Version None)
Quarter: 2004Q2

REPORT INFORMATION
  Report Type: 
  Country: None (occurrence: None)
  Receive Date: 20040616
  Receipt Date: 20040601
  Transmission Date: 20050107
  Serious: Yes (Disabling, Other)
  Sender: FDA-Public Use
  Company Number: ZONI001443

PATIENT
  Age: 38 Year
  Sex: Male

DRUGS (3)
  1. ZONEGRAN [Suspect]
     Indication: WEIGHT INCREASED
     Dosage: 100 MG DAILY ORAL
     Route: 048
     Dates: start: 20040302, end: 20040302
  2. TENUATE (AMFEPRAMONE) [Concomitant]
  3. AVAPRO [Concomitant]

REACTIONS (7)
  - BLINDNESS TRANSIENT [None]
  - BLOOD GLUCOSE DECREASED [None]
  - DISORIENTATION [None]
  - DIZZINESS [None]
  - IMPAIRED WORK ABILITY [None]
  - MYOPIA [None]
  - VISION BLURRED [None]
